FAERS Safety Report 24167470 (Version 1)
Quarter: 2024Q3

REPORT INFORMATION
  Report Type: Spontaneous
  Country: US (occurrence: None)
  Receive Date: 20240801
  Receipt Date: 20240801
  Transmission Date: 20241016
  Serious: Yes (Other)
  Sender: Public
  Company Number: None

PATIENT
  Age: 80 Year
  Sex: Female

DRUGS (1)
  1. KISQALI [Suspect]
     Active Substance: RIBOCICLIB
     Indication: Breast cancer female
     Dosage: FREQUENCY : AS DIRECTED;?

REACTIONS (23)
  - Arrhythmia [None]
  - Contusion [None]
  - Chest pain [None]
  - Constipation [None]
  - Fatigue [None]
  - Alopecia [None]
  - Stomatitis [None]
  - Choking sensation [None]
  - Chest pain [None]
  - Pain in extremity [None]
  - Back pain [None]
  - Pain in extremity [None]
  - Oedema [None]
  - Breast pain [None]
  - Taste disorder [None]
  - Neuropathy peripheral [None]
  - Tremor [None]
  - Asthenia [None]
  - Confusional state [None]
  - Disorientation [None]
  - Insomnia [None]
  - Tooth loss [None]
  - Peripheral swelling [None]
